FAERS Safety Report 8172117-X (Version None)
Quarter: 2012Q1

REPORT INFORMATION
  Report Type: 
  Country: None (occurrence: None)
  Receive Date: 20120228
  Receipt Date: 20120213
  Transmission Date: 20120608
  Serious: Yes (Hospitalization)
  Sender: FDA-Public Use
  Company Number: GB-BAUSCH-2012BL001110

PATIENT
  Age: 40 Year
  Sex: Female

DRUGS (4)
  1. IMA950 [Concomitant]
     Indication: GLIOBLASTOMA
     Route: 023
     Dates: start: 20111206, end: 20111206
  2. DEXAMETHASONE [Suspect]
     Indication: PRODUCT USED FOR UNKNOWN INDICATION
     Route: 065
  3. TEMOZOLOMIDE [Concomitant]
     Indication: GLIOBLASTOMA
     Route: 048
     Dates: start: 20110803, end: 20111218
  4. GRANULOCYTE MACROPHAGE CSF RECOMBINANT 21-R MODIFIED [Concomitant]
     Indication: GLIOBLASTOMA
     Route: 023
     Dates: start: 20111206, end: 20111206

REACTIONS (3)
  - VIRAL UPPER RESPIRATORY TRACT INFECTION [None]
  - PRESYNCOPE [None]
  - ORAL CANDIDIASIS [None]
